FAERS Safety Report 9995412 (Version 1)
Quarter: 2014Q1

REPORT INFORMATION
  Report Type: Spontaneous
  Country: US (occurrence: None)
  Receive Date: 20140307
  Receipt Date: 20140307
  Transmission Date: 20141002
  Serious: Yes (Disabling)
  Sender: FDA-Public Use
  Company Number: None

PATIENT
  Age: 54 Year
  Sex: Female
  Weight: 68.04 kg

DRUGS (3)
  1. URIBEL [Suspect]
     Indication: BLADDER DISCOMFORT
     Dosage: ONE CAPSULE TWICE DAILY
     Route: 048
     Dates: start: 20140129, end: 20140218
  2. URIBEL [Suspect]
     Indication: DYSURIA
     Dosage: ONE CAPSULE TWICE DAILY
     Route: 048
     Dates: start: 20140129, end: 20140218
  3. PRISTIQ [Suspect]
     Indication: DEPRESSION
     Route: 048
     Dates: start: 20131219, end: 20140303

REACTIONS (3)
  - Blood pressure increased [None]
  - Drug interaction [None]
  - Panic reaction [None]
